FAERS Safety Report 8969929 (Version 1)
Quarter: 2012Q4

REPORT INFORMATION
  Report Type: 
  Country: CO (occurrence: CO)
  Receive Date: 20121217
  Receipt Date: 20121217
  Transmission Date: 20130627
  Serious: Yes (Other)
  Sender: FDA-Public Use
  Company Number: CO-AMGEN-COLSP2012080317

PATIENT
  Age: 57 Year
  Sex: Male

DRUGS (4)
  1. ENBREL [Suspect]
     Indication: ANKYLOSING SPONDYLITIS
     Dosage: 50 mg, weekly
     Route: 058
     Dates: start: 2009, end: 2010
  2. ENBREL [Suspect]
     Dosage: 50 mg, 2x/week
     Route: 058
     Dates: start: 2010, end: 2011
  3. ENBREL [Suspect]
     Dosage: 50 mg, monthly
     Route: 058
     Dates: start: 201111, end: 201112
  4. BONVIVA [Concomitant]
     Indication: OSTEOPOROSIS
     Dosage: 3 mg every 3 months
     Route: 042
     Dates: start: 2008

REACTIONS (3)
  - Immunodeficiency [Unknown]
  - Tuberculin test positive [Unknown]
  - Hypertension [Not Recovered/Not Resolved]
